FAERS Safety Report 24402359 (Version 1)
Quarter: 2024Q4

REPORT INFORMATION
  Report Type: Spontaneous
  Country: IN (occurrence: IN)
  Receive Date: 20241007
  Receipt Date: 20241007
  Transmission Date: 20250114
  Serious: Yes (Death, Life-Threatening, Other)
  Sender: ALKEM
  Company Number: IN-ALKEM LABORATORIES LIMITED-IN-ALKEM-2024-22440

PATIENT
  Age: 30 Year
  Sex: Male

DRUGS (2)
  1. ITRACONAZOLE [Suspect]
     Active Substance: ITRACONAZOLE
     Indication: Body tinea
     Dosage: UNK (TABLET)
     Route: 065
  2. TERBINAFINE [Suspect]
     Active Substance: TERBINAFINE\TERBINAFINE HYDROCHLORIDE
     Indication: Body tinea
     Dosage: UNK, (TABLET)
     Route: 065

REACTIONS (10)
  - Multiple organ dysfunction syndrome [Fatal]
  - Pulmonary alveolar haemorrhage [Fatal]
  - Cardiac arrest [Fatal]
  - Respiratory failure [Unknown]
  - Cutaneous vasculitis [Unknown]
  - Anuria [Unknown]
  - Haemophagocytic lymphohistiocytosis [Unknown]
  - Renal impairment [Unknown]
  - Hyperkalaemia [Unknown]
  - Prescription drug used without a prescription [Unknown]
